FAERS Safety Report 12261582 (Version 1)
Quarter: 2016Q2

REPORT INFORMATION
  Report Type: Spontaneous
  Country: FR (occurrence: FR)
  Receive Date: 20160412
  Receipt Date: 20160412
  Transmission Date: 20160815
  Serious: Yes (Life-Threatening, Other)
  Sender: FDA-Public Use
  Company Number: FR-ASTRAZENECA-2016SE36414

PATIENT
  Age: 25474 Day
  Sex: Female

DRUGS (10)
  1. ARIMIDEX [Suspect]
     Active Substance: ANASTROZOLE
     Indication: BREAST CANCER
     Route: 048
     Dates: start: 20150104, end: 20160106
  2. ARIMIDEX [Suspect]
     Active Substance: ANASTROZOLE
     Indication: BREAST CANCER
     Route: 048
     Dates: start: 20160301
  3. KARDEGIC [Suspect]
     Active Substance: ASPIRIN LYSINE
     Indication: CARDIOVASCULAR EVENT PROPHYLAXIS
     Route: 048
     Dates: start: 20160215
  4. BISOPROLOL [Concomitant]
     Active Substance: BISOPROLOL
  5. KARDEGIC [Suspect]
     Active Substance: ASPIRIN LYSINE
     Indication: CARDIOVASCULAR EVENT PROPHYLAXIS
     Route: 048
     Dates: start: 201508, end: 20160106
  6. PREGABALIN. [Concomitant]
     Active Substance: PREGABALIN
  7. ALDACTAZINE [Concomitant]
     Active Substance: ALTHIAZIDE\SPIRONOLACTONE
  8. PERINDOPRIL [Concomitant]
     Active Substance: PERINDOPRIL
  9. ATORVASTATIN [Concomitant]
     Active Substance: ATORVASTATIN
  10. ESOMEPRAZOLE [Concomitant]
     Active Substance: ESOMEPRAZOLE

REACTIONS (7)
  - Carotid arteriosclerosis [None]
  - Haemorrhagic transformation stroke [Recovering/Resolving]
  - Myocardial infarction [None]
  - Ischaemic stroke [Recovering/Resolving]
  - Embolism [Unknown]
  - Atrial flutter [Unknown]
  - Arteriosclerosis coronary artery [None]

NARRATIVE: CASE EVENT DATE: 20160106
